FAERS Safety Report 24355774 (Version 1)
Quarter: 2024Q3

REPORT INFORMATION
  Report Type: Report from Study
  Country: DE (occurrence: DE)
  Receive Date: 20240924
  Receipt Date: 20240924
  Transmission Date: 20241017
  Serious: Yes (Death, Hospitalization, Other)
  Sender: ROCHE
  Company Number: None

PATIENT
  Sex: Male
  Weight: 102 kg

DRUGS (2)
  1. RITUXIMAB [Suspect]
     Active Substance: RITUXIMAB
     Indication: Product used for unknown indication
     Dosage: UNK UNK, UNKNOWN
     Route: 065
  2. PIRTOBRUTINIB [Suspect]
     Active Substance: PIRTOBRUTINIB
     Indication: Mantle cell lymphoma
     Dosage: 200 MG, DAILY
     Route: 048
     Dates: start: 20240423, end: 20240711

REACTIONS (16)
  - Splenomegaly [Unknown]
  - Cardiac failure [Unknown]
  - Pneumonia [Unknown]
  - General physical health deterioration [Unknown]
  - Atrial fibrillation [Unknown]
  - Anaphylactic reaction [Unknown]
  - Tumour lysis syndrome [Unknown]
  - Pyrexia [Unknown]
  - Respiratory acidosis [Unknown]
  - Blood bilirubin increased [Unknown]
  - Lymphadenopathy mediastinal [Unknown]
  - Malignant neoplasm progression [Unknown]
  - Liver disorder [Unknown]
  - Pneumonia fungal [Fatal]
  - Atypical pneumonia [Unknown]
  - Respiratory failure [Fatal]
